FAERS Safety Report 4482618-3 (Version None)
Quarter: 2004Q4

REPORT INFORMATION
  Report Type: 
  Country: None (occurrence: None)
  Receive Date: 20041022
  Receipt Date: 20041011
  Transmission Date: 20050328
  Serious: Yes (Death)
  Sender: FDA-Public Use
  Company Number: US-JNJFOC-20040703730

PATIENT
  Age: 18 Year
  Sex: Female
  Weight: 54.43 kg

DRUGS (1)
  1. ORTHO EVRA [Suspect]
     Indication: CONTRACEPTION
     Route: 062
     Dates: start: 20030908

REACTIONS (9)
  - CARDIO-RESPIRATORY ARREST [None]
  - COMA [None]
  - FALL [None]
  - FURUNCLE [None]
  - LYMPHADENOPATHY [None]
  - PULMONARY EMBOLISM [None]
  - PUPIL FIXED [None]
  - SUDDEN DEATH [None]
  - VAGINAL LESION [None]
